FAERS Safety Report 23369198 (Version 3)
Quarter: 2024Q1

REPORT INFORMATION
  Report Type: Report from Study
  Country: US (occurrence: None)
  Receive Date: 20240105
  Receipt Date: 20240306
  Transmission Date: 20240410
  Serious: Yes (Death, Other)
  Sender: FDA-Public Use
  Company Number: 2024A002292

PATIENT
  Age: 75 Year
  Sex: Male

DRUGS (1)
  1. TAGRISSO [Suspect]
     Active Substance: OSIMERTINIB
     Indication: Lung neoplasm malignant
     Route: 048
     Dates: start: 20231115, end: 20231120

REACTIONS (15)
  - Sepsis [Fatal]
  - Stomatitis [Fatal]
  - White blood cell count decreased [Fatal]
  - Pneumothorax [Fatal]
  - Infection [Fatal]
  - Pollakiuria [Fatal]
  - Onychoclasis [Fatal]
  - Pyrexia [Fatal]
  - Vision blurred [Fatal]
  - Foreign body sensation in eyes [Fatal]
  - Neoplasm [Fatal]
  - Urinary tract infection [Fatal]
  - Product prescribing issue [Unknown]
  - Extra dose administered [Unknown]
  - Overdose [Unknown]

NARRATIVE: CASE EVENT DATE: 20231122
